FAERS Safety Report 7048384-2 (Version None)
Quarter: 2010Q4

REPORT INFORMATION
  Report Type: 
  Country: None (occurrence: None)
  Receive Date: 20101015
  Receipt Date: 20101008
  Transmission Date: 20110411
  Serious: Yes (Hospitalization)
  Sender: FDA-Public Use
  Company Number: DE-ABBOTT-09P-062-0559231-00

PATIENT
  Age: 53 Year
  Sex: Female
  Weight: 80 kg

DRUGS (2)
  1. REDUCTIL [Suspect]
     Indication: OBESITY
     Route: 048
     Dates: start: 20081008
  2. BISOHEXAL [Suspect]
     Indication: HYPERTENSION
     Dosage: 10 MG - 1 IN 1 DAY - FILM-COATED TABLET
     Route: 048
     Dates: start: 20080201, end: 20081015

REACTIONS (4)
  - DIZZINESS [None]
  - DYSPNOEA [None]
  - HYPOTENSION [None]
  - SOMNOLENCE [None]
